FAERS Safety Report 5227814-2 (Version None)
Quarter: 2007Q1

REPORT INFORMATION
  Report Type: 
  Country: None (occurrence: None)
  Receive Date: 20070202
  Receipt Date: 20070122
  Transmission Date: 20070707
  Serious: Yes (Other)
  Sender: FDA-Public Use
  Company Number: US-PFIZER INC-2007006440

PATIENT
  Age: 56 Year
  Sex: Female

DRUGS (3)
  1. LYRICA [Suspect]
     Indication: NEUROPATHY
     Dates: start: 20060301, end: 20060801
  2. LOTREL [Concomitant]
     Route: 048
  3. HIZAAR [Concomitant]
     Route: 048

REACTIONS (1)
  - MUSCLE ATROPHY [None]
